FAERS Safety Report 21812574 (Version 1)
Quarter: 2023Q1

REPORT INFORMATION
  Report Type: Spontaneous
  Country: US (occurrence: US)
  Receive Date: 20230103
  Receipt Date: 20230103
  Transmission Date: 20230418
  Serious: No
  Sender: FDA-Public Use
  Company Number: US-FreseniusKabi-FK202218148

PATIENT
  Sex: Female

DRUGS (5)
  1. BUPIVACAINE [Suspect]
     Active Substance: BUPIVACAINE
     Indication: Product used for unknown indication
     Dosage: 6.005 MG, QD (CONCENTRATION: 20 MG)
     Route: 037
  2. MORPHINE [Suspect]
     Active Substance: MORPHINE
     Indication: Product used for unknown indication
     Dosage: 0.600 MG, QD (CONCENTRATION: 2 MG)
     Route: 037
  3. PRIALT [Suspect]
     Active Substance: ZICONOTIDE ACETATE
     Indication: Product used for unknown indication
     Route: 037
  4. BACLOFEN [Suspect]
     Active Substance: BACLOFEN
     Indication: Product used for unknown indication
     Dosage: 300.293 MCG, QD (CONCENTRATION: 1000 MCG)
     Route: 037
  5. CLONIDINE [Suspect]
     Active Substance: CLONIDINE
     Indication: Product used for unknown indication
     Dosage: 90.087 MCG, QD (CONCENTRATION: 300 MCG)
     Route: 037

REACTIONS (6)
  - Off label use [Unknown]
  - Swelling face [Unknown]
  - Mental status changes [Unknown]
  - Lethargy [Unknown]
  - Hypoaesthesia [Unknown]
  - Muscular weakness [Unknown]
